FAERS Safety Report 13798322 (Version 2)
Quarter: 2017Q3

REPORT INFORMATION
  Report Type: Report from Study
  Country: None (occurrence: AU)
  Receive Date: 20170727
  Receipt Date: 20170731
  Transmission Date: 20171127
  Serious: No
  Sender: FDA-Public Use
  Company Number: AU-ABBVIE-17K-008-1896413-00

PATIENT
  Sex: Female

DRUGS (1)
  1. HUMIRA [Suspect]
     Active Substance: ADALIMUMAB
     Indication: PSORIATIC ARTHROPATHY
     Route: 058
     Dates: start: 20160830, end: 201705

REACTIONS (7)
  - Migraine [Not Recovered/Not Resolved]
  - Peroneal nerve palsy [Unknown]
  - Oral infection [Recovered/Resolved]
  - Localised infection [Unknown]
  - Oedema [Unknown]
  - Petechiae [Unknown]
  - Lymphadenitis [Unknown]

NARRATIVE: CASE EVENT DATE: 2017
